FAERS Safety Report 5199357-6 (Version None)
Quarter: 2007Q1

REPORT INFORMATION
  Report Type: 
  Country: None (occurrence: None)
  Receive Date: 20070104
  Receipt Date: 20061227
  Transmission Date: 20070707
  Serious: Yes (Death)
  Sender: FDA-Public Use
  Company Number: FR-MERCK-0612FRA00097

PATIENT
  Age: 35 Year
  Sex: Male

DRUGS (2)
  1. PRIMAXIN [Suspect]
     Indication: INFECTION
     Route: 042
     Dates: start: 19900601, end: 19900619
  2. VANCOMYCIN [Suspect]
     Indication: INFECTION
     Route: 042
     Dates: start: 19900601, end: 19900619

REACTIONS (4)
  - ALANINE AMINOTRANSFERASE INCREASED [None]
  - BLOOD CREATININE INCREASED [None]
  - HYPERKALAEMIA [None]
  - PANCYTOPENIA [None]
